FAERS Safety Report 9702104 (Version 1)
Quarter: 2013Q4

REPORT INFORMATION
  Report Type: Spontaneous
  Country: US (occurrence: None)
  Receive Date: 20131120
  Receipt Date: 20131120
  Transmission Date: 20140711
  Serious: Yes (Other)
  Sender: FDA-Public Use
  Company Number: None

PATIENT
  Sex: Female
  Weight: 58.06 kg

DRUGS (12)
  1. ALENDRONATE SODIUM [Suspect]
     Indication: BONE DENSITY ABNORMAL
     Route: 048
     Dates: start: 20080101, end: 20130911
  2. VITAMIN C [Concomitant]
  3. VITAMIN D3 [Concomitant]
  4. ESTER C [Concomitant]
  5. ENSURE PROTEIN DRINK [Concomitant]
  6. CARNATION BREAKFAST DRINK [Concomitant]
  7. LITHIUM CARBONATE [Concomitant]
  8. CARBAMAZEPINE [Concomitant]
  9. MONTELUKAST SODIUM [Concomitant]
  10. FLUTICASONE PROPIONATE [Concomitant]
  11. AZELASTINE HCL NASAL [Concomitant]
  12. FLOVENT HFA [Concomitant]

REACTIONS (7)
  - Bone loss [None]
  - Tooth fracture [None]
  - Procedural complication [None]
  - Bacterial infection [None]
  - Toothache [None]
  - Bone atrophy [None]
  - Sinusitis [None]
